FAERS Safety Report 5647546-6 (Version None)
Quarter: 2008Q1

REPORT INFORMATION
  Report Type: 
  Country: None (occurrence: None)
  Receive Date: 20080131
  Receipt Date: 20071224
  Transmission Date: 20080703
  Serious: No
  Sender: FDA-Public Use
  Company Number: 163-21880-07121358

PATIENT
  Age: 64 Year
  Sex: Female

DRUGS (1)
  1. REVLIMID [Suspect]
     Indication: NON-HODGKIN'S LYMPHOMA
     Dosage: 15 MG, DAILY X 21 DAYS, ORAL
     Route: 048
     Dates: start: 20071006

REACTIONS (1)
  - OEDEMA PERIPHERAL [None]
